FAERS Safety Report 10236144 (Version 1)
Quarter: 2014Q2

REPORT INFORMATION
  Report Type: Spontaneous
  Country: US (occurrence: US)
  Receive Date: 20140613
  Receipt Date: 20140613
  Transmission Date: 20141212
  Serious: No
  Sender: FDA-Public Use
  Company Number: US-009507513-1406USA007203

PATIENT
  Sex: Female

DRUGS (1)
  1. IMPLANON [Suspect]
     Indication: CONTRACEPTION
     Dosage: LEFT ARM
     Route: 059
     Dates: start: 20110113, end: 20140529

REACTIONS (4)
  - Obesity [Recovering/Resolving]
  - Ovarian cyst [Recovering/Resolving]
  - Medical device complication [Recovered/Resolved]
  - Device deployment issue [Recovered/Resolved]
